FAERS Safety Report 7118290-3 (Version None)
Quarter: 2010Q4

REPORT INFORMATION
  Report Type: 
  Country: None (occurrence: None)
  Receive Date: 20101123
  Receipt Date: 20101116
  Transmission Date: 20110411
  Serious: Yes (Death, Hospitalization)
  Sender: FDA-Public Use
  Company Number: JP-BAYER-200914430BYL

PATIENT
  Age: 73 Year
  Sex: Male
  Weight: 50 kg

DRUGS (4)
  1. NEXAVAR [Suspect]
     Indication: HEPATIC NEOPLASM MALIGNANT
     Dosage: TOTAL DAILY DOSE: 400 MG  UNIT DOSE: 200 MG
     Route: 048
     Dates: start: 20090904, end: 20100916
  2. JUZENTAIHOTO [Concomitant]
     Indication: HEPATIC NEOPLASM MALIGNANT
     Dosage: UNIT DOSE: 2.5 G
     Route: 048
     Dates: start: 20080903
  3. LOXONIN [Concomitant]
     Indication: BACK PAIN
     Dosage: UNIT DOSE: 60 MG
     Route: 048
     Dates: start: 20100609
  4. PARIET [Concomitant]
     Indication: GASTRIC ULCER
     Dosage: UNIT DOSE: 10 MG
     Route: 048

REACTIONS (3)
  - COMA HEPATIC [None]
  - HEPATIC FAILURE [None]
  - PALMAR-PLANTAR ERYTHRODYSAESTHESIA SYNDROME [None]
